FAERS Safety Report 7669531-5 (Version None)
Quarter: 2011Q3

REPORT INFORMATION
  Report Type: 
  Country: None (occurrence: None)
  Receive Date: 20110803
  Receipt Date: 20110720
  Transmission Date: 20111222
  Serious: Yes (Hospitalization, Other)
  Sender: FDA-Public Use
  Company Number: 2011MA009186

PATIENT
  Age: 40 Year
  Sex: Male

DRUGS (1)
  1. IBUPROFEN [Suspect]
     Indication: BACK PAIN
     Dosage: 2 G;QD;PO
     Route: 048

REACTIONS (7)
  - ELECTROCARDIOGRAM QT PROLONGED [None]
  - HYPOPHOSPHATAEMIA [None]
  - SINUS BRADYCARDIA [None]
  - HYPOURICAEMIA [None]
  - MAGNESIUM DEFICIENCY [None]
  - HYPOKALAEMIA [None]
  - RENAL TUBULAR ACIDOSIS [None]
